FAERS Safety Report 23358302 (Version 1)
Quarter: 2024Q1

REPORT INFORMATION
  Report Type: Report from Study
  Country: US (occurrence: US)
  Receive Date: 20240102
  Receipt Date: 20240102
  Transmission Date: 20240409
  Serious: Yes (Hospitalization, Other)
  Sender: FDA-Public Use
  Company Number: US-JNJFOC-20231266227

PATIENT
  Age: 22 Year
  Sex: Female

DRUGS (3)
  1. SPRAVATO [Suspect]
     Active Substance: ESKETAMINE
     Indication: Depression
     Dosage: 56 MG, 1 DOSE
     Dates: start: 20221025, end: 20221025
  2. SPRAVATO [Suspect]
     Active Substance: ESKETAMINE
     Dosage: 84 MG, 52 DOSES
     Dates: start: 20221028, end: 20231206
  3. SPRAVATO [Suspect]
     Active Substance: ESKETAMINE
     Dosage: RECENT DOSE
     Dates: start: 20231221, end: 20231221

REACTIONS (1)
  - Seizure [Recovered/Resolved]

NARRATIVE: CASE EVENT DATE: 20231221
